FAERS Safety Report 24466947 (Version 1)
Quarter: 2024Q4

REPORT INFORMATION
  Report Type: Report from Study
  Country: US (occurrence: US)
  Receive Date: 20241018
  Receipt Date: 20241018
  Transmission Date: 20250115
  Serious: No
  Sender: ROCHE
  Company Number: US-ROCHE-3552220

PATIENT
  Age: 56 Year
  Sex: Female

DRUGS (27)
  1. XOLAIR [Suspect]
     Active Substance: OMALIZUMAB
     Indication: Urticaria
     Route: 058
     Dates: start: 2022
  2. XOLAIR [Suspect]
     Active Substance: OMALIZUMAB
     Indication: Idiopathic urticaria
  3. EPINASTINE HCL [Concomitant]
     Active Substance: EPINASTINE HYDROCHLORIDE
     Dosage: 1 DROP INTO AFFECTED EYE
     Route: 047
  4. PREDNISONE [Concomitant]
     Active Substance: PREDNISONE
     Dosage: FOR 2 DAYS
     Route: 048
  5. PREDNISONE [Concomitant]
     Active Substance: PREDNISONE
     Dosage: FOR 2 DAYS
     Route: 048
  6. PREDNISONE [Concomitant]
     Active Substance: PREDNISONE
     Dosage: FOR 2 DAYS
     Route: 048
  7. TRIAMCINOLONE ACETONIDE [Concomitant]
     Active Substance: TRIAMCINOLONE ACETONIDE
     Dosage: APPLICATION TO AFFECTED AREA WITH RASH EXTERNALLY
  8. VYVANSE [Concomitant]
     Active Substance: LISDEXAMFETAMINE DIMESYLATE
     Dosage: 1 CAPSULE IN THE MORNING ORALLY ONCE A DAY
  9. VENTOLIN HFA [Concomitant]
     Active Substance: ALBUTEROL SULFATE
     Indication: Dyspnoea
     Dosage: 2 PUFFS INHALATIONAL EVERY 4 HOURS
  10. VENTOLIN HFA [Concomitant]
     Active Substance: ALBUTEROL SULFATE
     Indication: Chest discomfort
  11. VENTOLIN HFA [Concomitant]
     Active Substance: ALBUTEROL SULFATE
     Indication: Wheezing
  12. TESTOSTERONE [Concomitant]
     Active Substance: TESTOSTERONE
     Route: 062
  13. PROGESTERONE [Concomitant]
     Active Substance: PROGESTERONE
     Route: 067
  14. ESTROGENS, CONJUGATED [Concomitant]
     Active Substance: ESTROGENS, CONJUGATED
     Route: 048
  15. POTASSIUM [Concomitant]
     Active Substance: POTASSIUM
  16. IODINE [Concomitant]
     Active Substance: IODINE
  17. VITAMIN C [Concomitant]
     Active Substance: ASCORBIC ACID
  18. B12 ACTIVE [Concomitant]
  19. EPINEPHRINE [Concomitant]
     Active Substance: EPINEPHRINE
     Dosage: 0.15MG/ 0.15 ML AS DIRECTED INJECTION PRN ALLERGIC REACTION 30 DAYS 2 REFILLS
  20. EPINEPHRINE [Concomitant]
     Active Substance: EPINEPHRINE
     Dosage: 0.3 MG/ML AS DIRECTED INJECTION PRN ALLERGIC REACTION 30 DAYS 2 REFILLS
  21. PREDNISOLONE [Concomitant]
     Active Substance: PREDNISOLONE
     Dosage: 15MG/5 ML ORALLY EVERY 6 HOURS AS NEEDED FOR ALLERGIC REACTIONS UNTIL SYMPTOMS RESOLVE 30 DAYS
     Route: 048
  22. BEPREVE [Concomitant]
     Active Substance: BEPOTASTINE BESILATE
     Dosage: TWICE A DAY AS NEEDED FOR RED, ITCHY, WATERY EYES 30 DAYS, 1 BOTTLE, REFILLS 3
     Route: 047
  23. ALBUTEROL SULFATE [Concomitant]
     Active Substance: ALBUTEROL SULFATE
     Indication: Dyspnoea
  24. ALBUTEROL SULFATE [Concomitant]
     Active Substance: ALBUTEROL SULFATE
     Indication: Chest discomfort
  25. ALBUTEROL SULFATE [Concomitant]
     Active Substance: ALBUTEROL SULFATE
     Indication: Wheezing
  26. CETIRIZINE HYDROCHLORIDE [Concomitant]
     Active Substance: CETIRIZINE HYDROCHLORIDE
     Route: 048
  27. FAMOTIDINE [Concomitant]
     Active Substance: FAMOTIDINE
     Dosage: TAKE 1 TABLET BY MOUTH TWICE A DAY FOR 30 DAYS, 90, 180 TABLETS REFILLS-1
     Route: 048

REACTIONS (1)
  - Dermatitis allergic [Unknown]
